FAERS Safety Report 5411277-8 (Version None)
Quarter: 2007Q3

REPORT INFORMATION
  Report Type: 
  Country: None (occurrence: None)
  Receive Date: 20070810
  Receipt Date: 20070803
  Transmission Date: 20080115
  Serious: Yes (Hospitalization, Disabling)
  Sender: FDA-Public Use
  Company Number: GB-ROCHE-506930

PATIENT
  Age: 62 Year
  Sex: Female
  Weight: 111 kg

DRUGS (11)
  1. XENICAL [Suspect]
     Indication: OBESITY
     Route: 048
     Dates: start: 20061012
  2. MONOMAX [Concomitant]
     Dosage: ^LONG STANDING THERAPY^
     Route: 048
  3. ASPIRIN [Concomitant]
     Dosage: ^LONG STANDING THERAPY^
     Route: 048
  4. ALLOPURINOL [Concomitant]
     Dosage: ^LONG STANDING THERAPY^
     Route: 048
  5. GLICLAZIDE [Concomitant]
     Dosage: ^LONG STANDING THERAPY^
     Route: 048
  6. METFORMIN HCL [Concomitant]
     Dosage: ^LONG STANDING THERAPY^
     Route: 048
  7. ACARBOSE [Concomitant]
     Dosage: ^LONG STANDING THERAPY^
     Route: 048
  8. PERINDOPRIL ERBUMINE [Concomitant]
     Dosage: ^LONG STANDING THERAPY^
     Route: 048
  9. FUROSEMIDE [Concomitant]
     Dosage: ^LONG STANDING THERAPY^
     Route: 048
  10. SIMVASTATIN [Concomitant]
     Dosage: ^ AT NIGHT^. ^LONG STANDING THERAPY^
     Route: 048
  11. ATENOLOL [Concomitant]
     Dates: start: 20070401

REACTIONS (5)
  - ANGINA PECTORIS [None]
  - BLOOD PRESSURE DECREASED [None]
  - DIZZINESS [None]
  - DYSPNOEA [None]
  - HEART RATE INCREASED [None]
